FAERS Safety Report 5553553-4 (Version None)
Quarter: 2007Q4

REPORT INFORMATION
  Report Type: 
  Country: None (occurrence: None)
  Receive Date: 20071213
  Receipt Date: 20071205
  Transmission Date: 20080405
  Serious: Yes (Other)
  Sender: FDA-Public Use
  Company Number: US-JNJFOC-20071202595

PATIENT
  Sex: Female
  Weight: 128.82 kg

DRUGS (3)
  1. TRAMADOL HCL [Suspect]
     Route: 048
  2. TRAMADOL HCL [Suspect]
     Indication: PAIN
     Dosage: 1-2 EVERY 4-6 HOURS
     Route: 048
  3. AVALIDE [Concomitant]
     Indication: HYPERTENSION
     Dosage: 30/ 25
     Route: 048

REACTIONS (6)
  - INADEQUATE ANALGESIA [None]
  - INCORRECT DOSE ADMINISTERED [None]
  - IRRITABLE BOWEL SYNDROME [None]
  - THERAPY CESSATION [None]
  - TREATMENT NONCOMPLIANCE [None]
  - WITHDRAWAL SYNDROME [None]
